FAERS Safety Report 9846218 (Version 2)
Quarter: 2014Q2

REPORT INFORMATION
  Report Type: Spontaneous
  Country: IT (occurrence: IT)
  Receive Date: 20140127
  Receipt Date: 20140423
  Transmission Date: 20141212
  Serious: Yes (Hospitalization)
  Sender: FDA-Public Use
  Company Number: IT-B.I. PHARMACEUTICALS,INC./RIDGEFIELD-2014-BI-02627IT

PATIENT
  Age: 67 Year
  Sex: Male

DRUGS (3)
  1. PRADAXA [Suspect]
     Indication: THROMBOSIS PROPHYLAXIS
     Route: 048
     Dates: start: 20131106, end: 20131113
  2. METOPROLOL [Concomitant]
     Indication: ATRIAL FIBRILLATION
     Route: 065
  3. ENAPREN [Concomitant]
     Indication: HYPERTENSION
     Route: 065

REACTIONS (3)
  - Dysarthria [Not Recovered/Not Resolved]
  - Cranial nerve disorder [Not Recovered/Not Resolved]
  - Dysphagia [Not Recovered/Not Resolved]
